FAERS Safety Report 13927681 (Version 1)
Quarter: 2017Q3

REPORT INFORMATION
  Report Type: Spontaneous
  Country: US (occurrence: US)
  Receive Date: 20170901
  Receipt Date: 20170901
  Transmission Date: 20171127
  Serious: Yes (Death, Hospitalization, Other)
  Sender: FDA-Public Use
  Company Number: US-ELI_LILLY_AND_COMPANY-US201708011388

PATIENT
  Sex: Male

DRUGS (1)
  1. HUMALOG [Suspect]
     Active Substance: INSULIN LISPRO
     Indication: TYPE 2 DIABETES MELLITUS
     Dosage: UNK, UNKNOWN
     Route: 065

REACTIONS (9)
  - Dementia [Unknown]
  - Facial bones fracture [Unknown]
  - Myocardial infarction [Unknown]
  - Feeding disorder [Unknown]
  - Pneumonia [Unknown]
  - Road traffic accident [Unknown]
  - Death [Fatal]
  - Loss of consciousness [Unknown]
  - Confusional state [Unknown]

NARRATIVE: CASE EVENT DATE: 2016
